FAERS Safety Report 8385932-4 (Version None)
Quarter: 2012Q2

REPORT INFORMATION
  Report Type: 
  Country: None (occurrence: None)
  Receive Date: 20120525
  Receipt Date: 20120518
  Transmission Date: 20120825
  Serious: Yes (Hospitalization)
  Sender: FDA-Public Use
  Company Number: US-JNJFOC-20120516185

PATIENT
  Sex: Female
  Weight: 101.61 kg

DRUGS (14)
  1. PREDNISONE TAB [Concomitant]
     Indication: ARTHRITIS
     Route: 048
     Dates: start: 19930101
  2. SYNTHROID [Concomitant]
     Route: 048
     Dates: start: 19940101
  3. COREG [Concomitant]
     Indication: BLOOD PRESSURE ABNORMAL
     Route: 048
     Dates: start: 20060101
  4. SIMPONI [Suspect]
     Indication: RHEUMATOID ARTHRITIS
     Route: 058
     Dates: start: 20120401
  5. SYNTHROID [Concomitant]
     Indication: THYROID DISORDER
     Route: 048
     Dates: start: 19940101
  6. PRAVASTATIN [Concomitant]
     Indication: BLOOD CHOLESTEROL ABNORMAL
     Route: 048
     Dates: start: 20020101
  7. GABAPENTIN [Concomitant]
     Indication: PAIN IN EXTREMITY
     Route: 048
     Dates: start: 20020101
  8. SIMPONI [Suspect]
     Route: 058
     Dates: start: 20100101, end: 20120201
  9. ANTIBIOTIC [Suspect]
     Indication: STAPHYLOCOCCAL INFECTION
     Dates: start: 20120322
  10. MIRTAZAPINE [Concomitant]
     Indication: SLEEP DISORDER
     Route: 048
     Dates: start: 20100101
  11. GABAPENTIN [Concomitant]
     Indication: HYPOAESTHESIA
     Route: 048
     Dates: start: 20020101
  12. ARAVA [Concomitant]
     Indication: ARTHRITIS
     Route: 048
     Dates: start: 20020101
  13. ESTROPIPATE [Concomitant]
     Indication: MOOD SWINGS
     Route: 048
     Dates: start: 19910101
  14. ESTROPIPATE [Concomitant]
     Indication: HOT FLUSH
     Route: 048
     Dates: start: 19910101

REACTIONS (6)
  - MUSCULOSKELETAL STIFFNESS [None]
  - IMMUNE SYSTEM DISORDER [None]
  - DISCOMFORT [None]
  - ARTHRALGIA [None]
  - STAPHYLOCOCCAL INFECTION [None]
  - SKIN LESION [None]
